FAERS Safety Report 9116581 (Version 1)
Quarter: 2013Q1

REPORT INFORMATION
  Report Type: Spontaneous
  Country: GB (occurrence: GB)
  Receive Date: 20130225
  Receipt Date: 20130225
  Transmission Date: 20140127
  Serious: Yes (Hospitalization, Other)
  Sender: FDA-Public Use
  Company Number: PHHY2013GB015727

PATIENT
  Age: 66 Year
  Sex: Female

DRUGS (7)
  1. IBANDRONIC ACID [Concomitant]
     Indication: METASTASES TO BONE
     Dosage: 50 MG, QD
     Route: 048
     Dates: start: 20090804
  2. CO-CODAMOL [Concomitant]
  3. QUININE [Concomitant]
     Indication: MUSCLE SPASMS
  4. TINZAPARIN [Concomitant]
     Indication: PULMONARY EMBOLISM
     Dosage: 13000 IU, QD
     Route: 058
     Dates: start: 20091205
  5. METHOTREXATE [Suspect]
     Indication: METASTASES TO MENINGES
     Dosage: 12.5 MG, QW2
     Route: 037
     Dates: start: 20091216, end: 20091218
  6. METHOTREXATE [Suspect]
     Dosage: 7.5 MG, UNK
     Dates: start: 20100111
  7. CALCIUM FOLINATE [Concomitant]
     Indication: SALVAGE THERAPY

REACTIONS (6)
  - Clostridium difficile colitis [Recovered/Resolved]
  - Stomatitis [Recovered/Resolved]
  - Pancytopenia [Recovered/Resolved]
  - Thrombocytopenia [Recovered/Resolved]
  - Neutropenia [Recovered/Resolved]
  - Eczema asteatotic [Recovered/Resolved]
